FAERS Safety Report 9897738 (Version 1)
Quarter: 2014Q1

REPORT INFORMATION
  Report Type: Spontaneous
  Country: US (occurrence: US)
  Receive Date: 20140214
  Receipt Date: 20140214
  Transmission Date: 20141002
  Serious: Yes (Death, Hospitalization)
  Sender: FDA-Public Use
  Company Number: US-NOVEN-14US008840

PATIENT
  Age: 42 Year
  Sex: Male

DRUGS (6)
  1. FENTANYL [Suspect]
     Dosage: UNK
     Route: 055
  2. ETHANOL [Concomitant]
     Indication: PRODUCT USED FOR UNKNOWN INDICATION
     Route: 048
  3. DIPHENHYDRAMINE [Concomitant]
     Indication: PRODUCT USED FOR UNKNOWN INDICATION
     Route: 048
  4. CLONAZEPAM [Concomitant]
     Indication: PRODUCT USED FOR UNKNOWN INDICATION
     Route: 048
  5. METOPROLOL [Concomitant]
     Indication: PRODUCT USED FOR UNKNOWN INDICATION
     Route: 048
  6. CAFFEINE [Concomitant]
     Indication: PRODUCT USED FOR UNKNOWN INDICATION
     Dosage: UNK
     Route: 048

REACTIONS (10)
  - Death [Fatal]
  - Completed suicide [Fatal]
  - Drug abuse [Fatal]
  - Exposure via inhalation [Fatal]
  - Chemical burn of gastrointestinal tract [Not Recovered/Not Resolved]
  - Brain injury [Fatal]
  - Subarachnoid haemorrhage [Fatal]
  - Ventricular tachycardia [Fatal]
  - Ventricular fibrillation [Fatal]
  - Lactic acidosis [Not Recovered/Not Resolved]
